FAERS Safety Report 9370725 (Version 1)
Quarter: 2013Q2

REPORT INFORMATION
  Report Type: Spontaneous
  Country: FR (occurrence: FR)
  Receive Date: 20130626
  Receipt Date: 20130626
  Transmission Date: 20140414
  Serious: Yes (Hospitalization)
  Sender: FDA-Public Use
  Company Number: FR-B.I. PHARMACEUTICALS,INC./RIDGEFIELD-2013-FF-01744FF

PATIENT
  Age: 63 Year
  Sex: Male

DRUGS (6)
  1. PRADAXA [Suspect]
     Indication: ATRIAL FIBRILLATION
     Dosage: 220 MG
     Route: 048
     Dates: end: 201210
  2. PRADAXA [Suspect]
     Dosage: 300 MG
     Route: 048
     Dates: start: 201210, end: 201306
  3. CARDENSIEL [Concomitant]
  4. TAHOR [Concomitant]
  5. COTAREG [Concomitant]
     Dosage: 80/12.5
  6. TRIMEBUTINE [Concomitant]

REACTIONS (1)
  - Transient ischaemic attack [Recovered/Resolved]
